FAERS Safety Report 10548329 (Version 2)
Quarter: 2014Q4

REPORT INFORMATION
  Report Type: Spontaneous
  Country: US (occurrence: US)
  Receive Date: 20141028
  Receipt Date: 20141104
  Transmission Date: 20150529
  Serious: No
  Sender: FDA-Public Use
  Company Number: US-009507513-1410USA014211

PATIENT

DRUGS (2)
  1. ZOCOR [Suspect]
     Active Substance: SIMVASTATIN
     Dosage: SOME ON 80 MG, SOME ON 40MG
     Route: 048
  2. ZOCOR [Suspect]
     Active Substance: SIMVASTATIN
     Dosage: SOME ON 80 MG REDUCED TO 40MG, SOME ON 40 MG REDUCED TO 20 MG
     Route: 048

REACTIONS (2)
  - Myalgia [Unknown]
  - Drug dose omission [Unknown]
